FAERS Safety Report 20141890 (Version 2)
Quarter: 2021Q4

REPORT INFORMATION
  Report Type: Report from Study
  Country: US (occurrence: US)
  Receive Date: 20211202
  Receipt Date: 20211221
  Transmission Date: 20220303
  Serious: Yes (Life-Threatening, Other)
  Sender: FDA-Public Use
  Company Number: US-GILEAD-2021-0558902

PATIENT
  Age: 56 Year
  Sex: Female

DRUGS (39)
  1. CENICRIVIROC [Suspect]
     Active Substance: CENICRIVIROC
     Indication: COVID-19
     Dosage: UNK, BID
     Route: 048
     Dates: start: 20210430
  2. PLACEBO [Suspect]
     Active Substance: UNSPECIFIED INGREDIENT
     Indication: COVID-19
     Dosage: UNK, BID
     Route: 048
     Dates: start: 20210430
  3. REMDESIVIR [Suspect]
     Active Substance: REMDESIVIR
     Indication: COVID-19
     Dosage: UNK, QD
     Route: 042
     Dates: start: 20210430
  4. ASPIRIN [Concomitant]
     Active Substance: ASPIRIN
  5. AMLODIPINE [Concomitant]
     Active Substance: AMLODIPINE BESYLATE
  6. BENZONATATE [Concomitant]
     Active Substance: BENZONATATE
  7. CISATRACURIUM BESYLATE [Concomitant]
     Active Substance: CISATRACURIUM BESYLATE
  8. CLOBETASOL [Concomitant]
     Active Substance: CLOBETASOL
  9. CLOBETASOL PROPIONATE [Concomitant]
     Active Substance: CLOBETASOL PROPIONATE
  10. CODEINE\GUAIFENESIN [Concomitant]
     Active Substance: CODEINE\GUAIFENESIN
  11. DEXAMETHASONE [Concomitant]
     Active Substance: DEXAMETHASONE
  12. EPINEPHRINE [Concomitant]
     Active Substance: EPINEPHRINE
  13. FAMOTIDINE [Concomitant]
     Active Substance: FAMOTIDINE
  14. FUROSEMIDE [Concomitant]
     Active Substance: FUROSEMIDE
  15. GABAPENTIN [Concomitant]
     Active Substance: GABAPENTIN
  16. GLUCAGON [Concomitant]
     Active Substance: GLUCAGON
  17. GUAIFENESIN [Concomitant]
     Active Substance: GUAIFENESIN
  18. HEPARIN SODIUM, PORCINE [Concomitant]
     Active Substance: HEPARIN SODIUM
  19. HYDRALAZINE [Concomitant]
     Active Substance: HYDRALAZINE HYDROCHLORIDE
  20. HYDROMORPHONE HYDROCHLORIDE [Concomitant]
     Active Substance: HYDROMORPHONE HYDROCHLORIDE
  21. IBUPROFEN [Concomitant]
     Active Substance: IBUPROFEN
  22. INSULIN LISPRO [Concomitant]
     Active Substance: INSULIN LISPRO
  23. IPRATROPIUM BROMIDE [Concomitant]
     Active Substance: IPRATROPIUM BROMIDE
  24. LABETALOL HYDROCHLORIDE [Concomitant]
     Active Substance: LABETALOL HYDROCHLORIDE
  25. LEVOTHYROXINE SODIUM [Concomitant]
     Active Substance: LEVOTHYROXINE SODIUM
  26. LIDOCAINE [Concomitant]
     Active Substance: LIDOCAINE
  27. POLYETHYLENE GLYCOL 3350 [Concomitant]
     Active Substance: POLYETHYLENE GLYCOL 3350
  28. METOCLOPRAMIDE HYDROCHLORIDE [Concomitant]
     Active Substance: METOCLOPRAMIDE HYDROCHLORIDE
  29. NALOXONE HYDROCHLORIDE [Concomitant]
     Active Substance: NALOXONE HYDROCHLORIDE
  30. ONDANSETRON [Concomitant]
     Active Substance: ONDANSETRON
  31. OXYCODONE [Concomitant]
     Active Substance: OXYCODONE
  32. ACETAMINOPHEN [Concomitant]
     Active Substance: ACETAMINOPHEN
  33. PIOGLITAZONE HYDROCHLORIDE [Concomitant]
     Active Substance: PIOGLITAZONE HYDROCHLORIDE
  34. RISPERIDONE [Concomitant]
     Active Substance: RISPERIDONE
  35. ALBUTEROL SULFATE [Concomitant]
     Active Substance: ALBUTEROL SULFATE
  36. SERTRALINE HYDROCHLORIDE [Concomitant]
     Active Substance: SERTRALINE HYDROCHLORIDE
  37. SODIUM BICARBONATE [Concomitant]
     Active Substance: SODIUM BICARBONATE
  38. TRAZODONE HYDROCHLORIDE [Concomitant]
     Active Substance: TRAZODONE HYDROCHLORIDE
  39. VANCOMYCIN HYDROCHLORIDE [Concomitant]
     Active Substance: VANCOMYCIN HYDROCHLORIDE

REACTIONS (1)
  - Pneumonia bacterial [Recovered/Resolved]

NARRATIVE: CASE EVENT DATE: 20210503
